FAERS Safety Report 19084805 (Version 1)
Quarter: 2021Q2

REPORT INFORMATION
  Report Type: Spontaneous
  Country: NL (occurrence: NL)
  Receive Date: 20210401
  Receipt Date: 20210401
  Transmission Date: 20210717
  Serious: Yes (Other)
  Sender: FDA-Public Use
  Company Number: NL-BAUSCH-BL-2021-010175

PATIENT
  Age: 72 Year
  Sex: Male
  Weight: 72 kg

DRUGS (2)
  1. METFORMIN [Suspect]
     Active Substance: METFORMIN HYDROCHLORIDE
     Indication: TYPE 2 DIABETES MELLITUS
     Route: 065
  2. GLICLAZIDE [Suspect]
     Active Substance: GLICLAZIDE
     Indication: TYPE 2 DIABETES MELLITUS
     Route: 065

REACTIONS (14)
  - Seizure [Unknown]
  - Hypoglycaemia [Recovered/Resolved]
  - Cerebrovascular accident [Unknown]
  - Hallucination [Unknown]
  - Confusional state [Recovered/Resolved]
  - Fall [Recovered/Resolved]
  - Headache [Recovered/Resolved]
  - Personality change [Unknown]
  - Dizziness [Recovered/Resolved]
  - Mood altered [Unknown]
  - Cognitive disorder [Unknown]
  - Hyperhidrosis [Recovered/Resolved]
  - Somnolence [Recovered/Resolved]
  - Disturbance in attention [Recovered/Resolved]
